FAERS Safety Report 22263796 (Version 1)
Quarter: 2023Q2

REPORT INFORMATION
  Report Type: Spontaneous
  Country: JP (occurrence: JP)
  Receive Date: 20230428
  Receipt Date: 20230428
  Transmission Date: 20230722
  Serious: Yes (Other)
  Sender: FDA-Public Use
  Company Number: JP-GUERBETG_JAPAN-JP-20230050

PATIENT
  Age: 30 Year
  Sex: Female

DRUGS (1)
  1. ETHIODIZED OIL [Suspect]
     Active Substance: ETHIODIZED OIL
     Indication: Hysterosalpingogram

REACTIONS (3)
  - Polyhydramnios [Recovered/Resolved]
  - Maternal exposure before pregnancy [Recovered/Resolved]
  - Therapeutic response unexpected [Recovered/Resolved]
